FAERS Safety Report 23891186 (Version 1)
Quarter: 2024Q2

REPORT INFORMATION
  Report Type: Spontaneous
  Country: US (occurrence: None)
  Receive Date: 20240523
  Receipt Date: 20240523
  Transmission Date: 20240715
  Serious: No
  Sender: FDA-Public Use
  Company Number: 2024A105539

PATIENT
  Age: 18 Year
  Sex: Female

DRUGS (1)
  1. TEZSPIRE [Suspect]
     Active Substance: TEZEPELUMAB-EKKO
     Indication: Asthma
     Dates: start: 2023

REACTIONS (2)
  - Injection site pain [Unknown]
  - Product leakage [Unknown]

NARRATIVE: CASE EVENT DATE: 20240502
